FAERS Safety Report 7794218-8 (Version None)
Quarter: 2011Q4

REPORT INFORMATION
  Report Type: 
  Country: None (occurrence: None)
  Receive Date: 20111004
  Receipt Date: 20110518
  Transmission Date: 20120403
  Serious: No
  Sender: FDA-Public Use
  Company Number: US-VIIV HEALTHCARE LIMITED-A0927843A

PATIENT
  Age: 64 Year
  Sex: Male

DRUGS (6)
  1. TRUVADA [Concomitant]
  2. LOPID [Concomitant]
  3. ACYCLOVIR [Concomitant]
  4. ISENTRESS [Concomitant]
  5. SELZENTRY [Suspect]
     Indication: HIV INFECTION
     Dosage: 300MG TWICE PER DAY
     Route: 048
  6. VICODIN [Concomitant]

REACTIONS (1)
  - ARTHRALGIA [None]
